FAERS Safety Report 15934607 (Version 2)
Quarter: 2019Q1

REPORT INFORMATION
  Report Type: Other
  Country: IT (occurrence: IT)
  Receive Date: 20190207
  Receipt Date: 20190211
  Transmission Date: 20190417
  Serious: Yes (Other)
  Sender: FDA-Public Use
  Company Number: IT-BIOCODEX SA-201801586

PATIENT
  Age: 14 Year
  Sex: Male
  Weight: 52 kg

DRUGS (13)
  1. DIACOMIT [Suspect]
     Active Substance: STIRIPENTOL
     Dosage: 75 MG, QD
     Route: 048
     Dates: start: 20170822, end: 20170828
  2. DIACOMIT [Suspect]
     Active Substance: STIRIPENTOL
     Dosage: 350 MG, QD
     Route: 048
     Dates: start: 20171010
  3. DIACOMIT [Suspect]
     Active Substance: STIRIPENTOL
     Dosage: 300 MG, QD
     Route: 048
     Dates: start: 20170905, end: 20171009
  4. TEGRETOL [Suspect]
     Active Substance: CARBAMAZEPINE
     Dosage: 3 MG, QD
     Route: 048
     Dates: start: 20170803, end: 20170809
  5. TEGRETOL [Suspect]
     Active Substance: CARBAMAZEPINE
     Dosage: 5.0 MG, QD
     Route: 048
     Dates: start: 20170810, end: 20180111
  6. TEGRETOL [Suspect]
     Active Substance: CARBAMAZEPINE
     Dosage: 3.5 MG, QD
     Dates: start: 20180127, end: 20180222
  7. FRISIUM [Suspect]
     Active Substance: CLOBAZAM
     Indication: EPILEPSY
     Dosage: 1 DF, QD
     Route: 048
     Dates: start: 20180101, end: 20180914
  8. TEGRETOL [Suspect]
     Active Substance: CARBAMAZEPINE
     Dosage: 3 MG, QD
     Dates: start: 20180223
  9. DIACOMIT [Suspect]
     Active Substance: STIRIPENTOL
     Indication: EPILEPSY
     Dosage: 1000 MG, QD
     Route: 048
     Dates: start: 20180901, end: 20180915
  10. TEGRETOL [Suspect]
     Active Substance: CARBAMAZEPINE
     Dosage: 1.5 MG, QD
     Dates: start: 20170727, end: 20170802
  11. TEGRETOL [Suspect]
     Active Substance: CARBAMAZEPINE
     Dosage: 4 MG, QD
     Route: 048
     Dates: start: 20180112, end: 20180126
  12. TEGRETOL [Suspect]
     Active Substance: CARBAMAZEPINE
     Indication: EPILEPSY
     Dosage: 1000 MG, QD
     Dates: start: 20180101, end: 20180915
  13. DIACOMIT [Suspect]
     Active Substance: STIRIPENTOL
     Dosage: 150 MG, QD
     Route: 048
     Dates: start: 20170829, end: 20170904

REACTIONS (4)
  - Epilepsy [Recovering/Resolving]
  - Drug ineffective [Recovering/Resolving]
  - Generalised tonic-clonic seizure [Recovering/Resolving]
  - Product use in unapproved indication [Recovered/Resolved]

NARRATIVE: CASE EVENT DATE: 20180901
